FAERS Safety Report 5648393-1 (Version None)
Quarter: 2008Q1

REPORT INFORMATION
  Report Type: 
  Country: None (occurrence: None)
  Receive Date: 20080303
  Receipt Date: 20080303
  Transmission Date: 20080703
  Serious: Yes (Other)
  Sender: FDA-Public Use
  Company Number: None

PATIENT
  Age: 36 Year
  Sex: Female
  Weight: 68.0396 kg

DRUGS (1)
  1. ADVAIR DISKUS 500/50 [Suspect]
     Indication: ASTHMA
     Dosage: 500/50 ONCE PUFF ONCE DAILY PO
     Route: 048
     Dates: start: 20080225

REACTIONS (13)
  - ASTHENIA [None]
  - CHEST PAIN [None]
  - DIPLOPIA [None]
  - FEELING ABNORMAL [None]
  - HEADACHE [None]
  - ILL-DEFINED DISORDER [None]
  - NERVOUSNESS [None]
  - NIGHTMARE [None]
  - PALPITATIONS [None]
  - PRURITUS [None]
  - SYNCOPE [None]
  - TREMOR [None]
  - VISION BLURRED [None]
